FAERS Safety Report 23816711 (Version 1)
Quarter: 2024Q2

REPORT INFORMATION
  Report Type: Spontaneous
  Country: US (occurrence: US)
  Receive Date: 20240504
  Receipt Date: 20240504
  Transmission Date: 20240716
  Serious: Yes (Other)
  Sender: FDA-Public Use
  Company Number: US-FDC-2024USLIT00353

PATIENT
  Age: 37 Year
  Sex: Male

DRUGS (1)
  1. CIPROFLOXACIN [Suspect]
     Active Substance: CIPROFLOXACIN
     Indication: Epididymitis
     Route: 065

REACTIONS (2)
  - Aortic aneurysm rupture [Recovered/Resolved]
  - Product use in unapproved indication [Unknown]
